FAERS Safety Report 23920486 (Version 1)
Quarter: 2024Q2

REPORT INFORMATION
  Report Type: Spontaneous
  Country: CN (occurrence: None)
  Receive Date: 20240530
  Receipt Date: 20240530
  Transmission Date: 20240716
  Serious: Yes (Hospitalization, Other)
  Sender: FDA-Public Use
  Company Number: 2024A123845

PATIENT
  Age: 56 Year
  Sex: Male
  Weight: 56 kg

DRUGS (5)
  1. DAPAGLIFLOZIN [Suspect]
     Active Substance: DAPAGLIFLOZIN
     Indication: Type 2 diabetes mellitus
     Route: 048
     Dates: start: 20240320, end: 20240516
  2. LINAGLIPTIN [Suspect]
     Active Substance: LINAGLIPTIN
  3. METFORMIN HYDROCHLORIDE [Suspect]
     Active Substance: METFORMIN HYDROCHLORIDE
  4. GLICLAZIDE [Suspect]
     Active Substance: GLICLAZIDE
  5. ACARBOSE [Suspect]
     Active Substance: ACARBOSE

REACTIONS (3)
  - Marasmus [Unknown]
  - Helicobacter gastritis [Unknown]
  - Hepatic cyst [Unknown]

NARRATIVE: CASE EVENT DATE: 20240513
